FAERS Safety Report 9612281 (Version 2)
Quarter: 2013Q4

REPORT INFORMATION
  Report Type: Spontaneous
  Country: US (occurrence: US)
  Receive Date: 20131010
  Receipt Date: 20131010
  Transmission Date: 20140711
  Serious: No
  Sender: FDA-Public Use
  Company Number: US-ASTELLAS-2013US008209

PATIENT
  Sex: Male

DRUGS (1)
  1. MYRBETRIQ [Suspect]
     Indication: STRESS URINARY INCONTINENCE
     Dosage: UNK
     Route: 048
     Dates: start: 20130619, end: 20130726

REACTIONS (2)
  - Off label use [Unknown]
  - Migraine with aura [Unknown]
